FAERS Safety Report 5162214-5 (Version None)
Quarter: 2006Q4

REPORT INFORMATION
  Report Type: 
  Country: None (occurrence: None)
  Receive Date: 20061121
  Receipt Date: 20061102
  Transmission Date: 20070319
  Serious: Yes (Hospitalization, Other)
  Sender: FDA-Public Use
  Company Number: 231771

PATIENT
  Age: 68 Year
  Sex: Female

DRUGS (9)
  1. AVASTIN [Suspect]
     Indication: COLORECTAL CANCER
     Dosage: 5 MG/KG, Q2W
     Dates: end: 20060830
  2. FLUOROURACIL [Suspect]
     Indication: DRUG USE FOR UNKNOWN INDICATION
  3. LEUCOVORIN CALCIUM [Suspect]
     Indication: DRUG USE FOR UNKNOWN INDICATION
  4. OXALIPLATIN [Suspect]
     Indication: DRUG USE FOR UNKNOWN INDICATION
  5. ABH (DIPHENHYDRAMINE HYDROCHLORIDE, HALOPERIDOL, LORAZEPAM) [Concomitant]
  6. DEXAMETHASONE TAB [Concomitant]
  7. ALOXI [Concomitant]
  8. MAGNESIUM SULFATE [Concomitant]
  9. CALCIUM GLUCONATE [Concomitant]

REACTIONS (6)
  - ANOREXIA [None]
  - BONE MARROW FAILURE [None]
  - DEHYDRATION [None]
  - NAUSEA [None]
  - VOMITING [None]
  - WEIGHT DECREASED [None]
